FAERS Safety Report 20611724 (Version 2)
Quarter: 2022Q2

REPORT INFORMATION
  Report Type: Spontaneous
  Country: US (occurrence: None)
  Receive Date: 20220318
  Receipt Date: 20220420
  Transmission Date: 20220721
  Serious: No
  Sender: FDA-Public Use
  Company Number: 2022A077628

PATIENT
  Age: 29500 Day
  Sex: Female
  Weight: 81.6 kg

DRUGS (1)
  1. SYMBICORT [Suspect]
     Active Substance: BUDESONIDE\FORMOTEROL FUMARATE DIHYDRATE
     Indication: Chronic obstructive pulmonary disease
     Dosage: 160/4.5 MCGS TWO PUFFS TWO TIMES A DAY
     Route: 055

REACTIONS (4)
  - Dyspnoea [Unknown]
  - Irritability [Unknown]
  - Device malfunction [Unknown]
  - Drug dose omission by device [Unknown]

NARRATIVE: CASE EVENT DATE: 20220216
